FAERS Safety Report 24455842 (Version 2)
Quarter: 2024Q4

REPORT INFORMATION
  Report Type: Report from Study
  Country: US (occurrence: US)
  Receive Date: 20241017
  Receipt Date: 20241018
  Transmission Date: 20250115
  Serious: No
  Sender: ROCHE
  Company Number: US-ROCHE-3485017

PATIENT
  Age: 39 Year
  Sex: Female

DRUGS (4)
  1. RITUXAN [Suspect]
     Active Substance: RITUXIMAB
     Indication: Pemphigus
     Dosage: ON DAY 01 AND DAY 15 AND REPEATED AS DIRECTED.
     Route: 042
  2. TYLENOL [Concomitant]
     Active Substance: ACETAMINOPHEN
  3. BENADRYL [Concomitant]
     Active Substance: DIPHENHYDRAMINE HYDROCHLORIDE
  4. METHYLPREDNISOLONE [Concomitant]
     Active Substance: METHYLPREDNISOLONE

REACTIONS (2)
  - Off label use [Unknown]
  - No adverse event [Unknown]
